FAERS Safety Report 8434672-1 (Version None)
Quarter: 2012Q2

REPORT INFORMATION
  Report Type: 
  Country: None (occurrence: None)
  Receive Date: 20120323
  Receipt Date: 20110727
  Transmission Date: 20120825
  Serious: Yes (Other)
  Sender: FDA-Public Use
  Company Number: 163-21880-11064084

PATIENT
  Age: 80 Year
  Sex: Female

DRUGS (4)
  1. REVLIMID [Suspect]
     Indication: MULTIPLE MYELOMA
     Dosage: 25 MG,1 IN 1 D, PO, 10 MG, X14 DAYS, 7 DAYS OFF REPEAT, PO, 10 MG, X 21 DAYS, 7 DAYS OFF REPEAT, PO
     Route: 048
     Dates: start: 20110101, end: 20110101
  2. REVLIMID [Suspect]
     Indication: MULTIPLE MYELOMA
     Dosage: 25 MG,1 IN 1 D, PO, 10 MG, X14 DAYS, 7 DAYS OFF REPEAT, PO, 10 MG, X 21 DAYS, 7 DAYS OFF REPEAT, PO
     Route: 048
     Dates: start: 20100701
  3. REVLIMID [Suspect]
     Indication: MULTIPLE MYELOMA
     Dosage: 25 MG,1 IN 1 D, PO, 10 MG, X14 DAYS, 7 DAYS OFF REPEAT, PO, 10 MG, X 21 DAYS, 7 DAYS OFF REPEAT, PO
     Route: 048
     Dates: start: 20101001, end: 20110101
  4. ZOMETA [Concomitant]

REACTIONS (5)
  - RED BLOOD CELL COUNT DECREASED [None]
  - TUMOUR MARKER INCREASED [None]
  - WHITE BLOOD CELL COUNT DECREASED [None]
  - PLATELET COUNT DECREASED [None]
  - FATIGUE [None]
